FAERS Safety Report 4511668-3 (Version None)
Quarter: 2004Q4

REPORT INFORMATION
  Report Type: 
  Country: None (occurrence: None)
  Receive Date: 20041123
  Receipt Date: 20041123
  Transmission Date: 20050328
  Serious: Yes (Hospitalization)
  Sender: FDA-Public Use
  Company Number: None

PATIENT
  Age: 74 Year
  Sex: Female

DRUGS (5)
  1. VICODIN [Suspect]
     Indication: ABDOMINAL PAIN
  2. NADOLOL [Concomitant]
  3. ENALAPRIL [Concomitant]
  4. ATORVASTATIN [Concomitant]
  5. PANTOPRAZOLE [Concomitant]

REACTIONS (3)
  - ABDOMINAL PAIN [None]
  - ILEUS [None]
  - SMALL INTESTINAL OBSTRUCTION [None]
